FAERS Safety Report 24023587 (Version 2)
Quarter: 2024Q3

REPORT INFORMATION
  Report Type: Report from Study
  Country: AT (occurrence: AT)
  Receive Date: 20240627
  Receipt Date: 20240710
  Transmission Date: 20241016
  Serious: No
  Sender: ROCHE
  Company Number: AT-ROCHE-3077816

PATIENT
  Age: 59 Year
  Sex: Female
  Weight: 56.0 kg

DRUGS (3)
  1. ALECTINIB [Suspect]
     Active Substance: ALECTINIB
     Indication: Lung cancer metastatic
     Route: 048
     Dates: start: 20211210
  2. NOVALGIN (AUSTRIA) [Concomitant]
     Indication: Pain prophylaxis
     Dosage: FREQUENCY TEXT:QID
     Route: 048
     Dates: start: 20220225, end: 20220331
  3. ACETAMINOPHEN [Concomitant]
     Active Substance: ACETAMINOPHEN
     Indication: Pain prophylaxis
     Route: 048
     Dates: start: 20220225, end: 20220331

REACTIONS (1)
  - Paresis [Not Recovered/Not Resolved]

NARRATIVE: CASE EVENT DATE: 20220217
